FAERS Safety Report 5609062-7 (Version None)
Quarter: 2008Q1

REPORT INFORMATION
  Report Type: 
  Country: None (occurrence: None)
  Receive Date: 20080131
  Receipt Date: 20080123
  Transmission Date: 20080703
  Serious: Yes (Other)
  Sender: FDA-Public Use
  Company Number: AU-ELI_LILLY_AND_COMPANY-AU200711006134

PATIENT
  Age: 35 Year
  Sex: Male

DRUGS (3)
  1. ZYPREXA [Suspect]
     Indication: SCHIZOAFFECTIVE DISORDER
     Dosage: 15 MG, DAILY (1/D)
     Route: 048
     Dates: start: 20050101
  2. VALPROATE SODIUM [Concomitant]
     Dosage: 1 G, EACH EVENING
  3. ARIPIPRAZOLE [Concomitant]
     Dosage: 10 MG, EACH MORNING

REACTIONS (2)
  - BRUGADA SYNDROME [None]
  - WEIGHT INCREASED [None]
